FAERS Safety Report 13607655 (Version 1)
Quarter: 2017Q2

REPORT INFORMATION
  Report Type: Spontaneous
  Country: US (occurrence: US)
  Receive Date: 20170602
  Receipt Date: 20170602
  Transmission Date: 20170830
  Serious: Yes (Other)
  Sender: FDA-Public Use
  Company Number: US-WEST-WARD PHARMACEUTICALS CORP.-US-H14001-17-01766

PATIENT
  Age: 81 Year
  Sex: Female

DRUGS (1)
  1. LORAZEPAM. [Suspect]
     Active Substance: LORAZEPAM
     Indication: ESSENTIAL TREMOR
     Dosage: EVERY 4 HR TO 6 HR, WITH AN AVERAGE DAILY INTAKE OF ABOUT 6 MG
     Route: 065

REACTIONS (1)
  - Dementia [Unknown]
